FAERS Safety Report 14299010 (Version 4)
Quarter: 2018Q1

REPORT INFORMATION
  Report Type: Spontaneous
  Country: BR (occurrence: BR)
  Receive Date: 20171218
  Receipt Date: 20180326
  Transmission Date: 20180509
  Serious: Yes (Other)
  Sender: FDA-Public Use
  Company Number: BR-ALEXION-A201713919

PATIENT
  Age: 33 Year
  Sex: Female
  Weight: 46 kg

DRUGS (5)
  1. TACROLIMUS. [Concomitant]
     Active Substance: TACROLIMUS
     Indication: PRODUCT USED FOR UNKNOWN INDICATION
     Dosage: 6 MG, QD
     Route: 065
  2. SOLIRIS [Suspect]
     Active Substance: ECULIZUMAB
     Indication: ATYPICAL HAEMOLYTIC URAEMIC SYNDROME
     Dosage: 900MG EVERY 7 DAYS
     Route: 042
     Dates: start: 20161109, end: 20161130
  3. SOLIRIS [Suspect]
     Active Substance: ECULIZUMAB
     Dosage: 1200MG EVERY 14 DAYS
     Route: 042
     Dates: start: 20161208, end: 20170824
  4. PREDNISOLONE. [Concomitant]
     Active Substance: PREDNISOLONE
     Indication: PRODUCT USED FOR UNKNOWN INDICATION
     Dosage: 1 TABLET OF 5 MG, QD
     Route: 065
  5. MYCOPHENOLATE [Concomitant]
     Active Substance: MYCOPHENOLIC ACID
     Indication: PRODUCT USED FOR UNKNOWN INDICATION
     Dosage: 2 TABLETS OF 360 MG, QD
     Route: 065

REACTIONS (15)
  - Nervousness [Unknown]
  - Diarrhoea [Recovered/Resolved]
  - Vomiting [Unknown]
  - Sleep disorder [Unknown]
  - Blood urea increased [Unknown]
  - Hypoaesthesia [Unknown]
  - Poor quality sleep [Unknown]
  - Urine abnormality [Unknown]
  - Haematemesis [Unknown]
  - Blood creatinine increased [Unknown]
  - Menorrhagia [Recovered/Resolved]
  - Vaginal haemorrhage [Recovered/Resolved]
  - Haemorrhage [Unknown]
  - Proteinuria [Unknown]
  - Asthenia [Unknown]

NARRATIVE: CASE EVENT DATE: 20171124
